FAERS Safety Report 26151024 (Version 1)
Quarter: 2025Q4

REPORT INFORMATION
  Report Type: Spontaneous
  Country: US (occurrence: None)
  Receive Date: 20251211
  Receipt Date: 20251211
  Transmission Date: 20260117
  Serious: Yes (Other)
  Sender: FDA-CTU
  Company Number: None

PATIENT
  Age: 65 Year
  Sex: Female

DRUGS (2)
  1. FERUMOXYTOL [Suspect]
     Active Substance: FERUMOXYTOL
     Dosage: OTHER FREQUENCY : ONCE;
     Route: 041
  2. 100ml saline, baxter, lot USO21388, exp 03/27 [Concomitant]

REACTIONS (4)
  - Chest discomfort [None]
  - Dizziness [None]
  - Malaise [None]
  - Infusion related reaction [None]

NARRATIVE: CASE EVENT DATE: 20251211
